FAERS Safety Report 17167565 (Version 2)
Quarter: 2019Q4

REPORT INFORMATION
  Report Type: Spontaneous
  Country: JP (occurrence: JP)
  Receive Date: 20191217
  Receipt Date: 20191223
  Transmission Date: 20200122
  Serious: Yes (Hospitalization, Other)
  Sender: FDA-Public Use
  Company Number: JP-GLAXOSMITHKLINE-JP2019JPN228467

PATIENT
  Age: 84 Year
  Sex: Male
  Weight: 44 kg

DRUGS (8)
  1. AVOLVE [Suspect]
     Active Substance: DUTASTERIDE
     Indication: BENIGN PROSTATIC HYPERPLASIA
     Dosage: 0.5 MG, QD AFTER BREAKFAST
     Route: 048
     Dates: end: 20191106
  2. ISOSORBIDE DINITRATE TAPE [Concomitant]
     Dosage: 1 DF, QD
     Route: 050
  3. MAGNESIUM OXIDE TABLET [Concomitant]
     Dosage: 330 MG, TID AFTER MEALS
     Route: 048
  4. CHINESE MEDICINE [Concomitant]
     Active Substance: UNSPECIFIED INGREDIENT
     Dosage: 2.5 G, TID BEFORE MEALS
     Route: 048
  5. LIPACREON [Concomitant]
     Active Substance: PANCRELIPASE
     Dosage: 600 MG, TID IMMEDIATELY AFTER MEALS
     Route: 048
  6. NEODOPASOL [Concomitant]
     Active Substance: BENSERAZIDE HYDROCHLORIDE\LEVODOPA
     Dosage: UNK, TID AFTER MEALS (MORNING: 2 TABLETS, NOON: 2 TABLETS, EVENING: 1 TABLET)
     Route: 048
  7. AVOLVE [Suspect]
     Active Substance: DUTASTERIDE
     Dosage: 0.5 MG, QD AFTER BREAKFAST
     Route: 050
     Dates: start: 20191103, end: 20191107
  8. BISONO TAPE [Concomitant]
     Dosage: 0.5 DF, QD
     Route: 050

REACTIONS (6)
  - Pneumonia aspiration [Unknown]
  - Dysphagia [Unknown]
  - Femur fracture [Recovered/Resolved]
  - Product use issue [Unknown]
  - Wrong technique in product usage process [Unknown]
  - Hepatic mass [Unknown]

NARRATIVE: CASE EVENT DATE: 20191103
